FAERS Safety Report 8143359-4 (Version None)
Quarter: 2012Q1

REPORT INFORMATION
  Report Type: 
  Country: None (occurrence: None)
  Receive Date: 20120217
  Receipt Date: 20120203
  Transmission Date: 20120608
  Serious: Yes (Other)
  Sender: FDA-Public Use
  Company Number: CA-JNJFOC-20120205111

PATIENT
  Sex: Female
  Weight: 98 kg

DRUGS (2)
  1. CEFAZOLIN [Concomitant]
     Route: 065
  2. REMICADE [Suspect]
     Indication: CROHN'S DISEASE
     Route: 042
     Dates: start: 20100519, end: 20111222

REACTIONS (1)
  - BREAST MASS [None]
